FAERS Safety Report 5370791-4 (Version None)
Quarter: 2007Q2

REPORT INFORMATION
  Report Type: 
  Country: None (occurrence: None)
  Receive Date: 20070626
  Receipt Date: 20070615
  Transmission Date: 20071010
  Serious: Yes (Hospitalization)
  Sender: FDA-Public Use
  Company Number: B0475732B

PATIENT
  Sex: Male
  Weight: 2.1 kg

DRUGS (6)
  1. COMBIVIR [Suspect]
     Indication: HIV INFECTION
     Dosage: 1TAB TWICE PER DAY
     Dates: end: 20070430
  2. KALETRA [Suspect]
     Indication: HIV INFECTION
     Dosage: 2TAB TWICE PER DAY
     Dates: end: 20070526
  3. INVIRASE [Suspect]
     Indication: HIV INFECTION
     Dosage: 2CAP TWICE PER DAY
     Dates: start: 20070430, end: 20070526
  4. KALETRA [Suspect]
     Dosage: 30MG THREE TIMES PER DAY
     Route: 048
     Dates: start: 20070526, end: 20070530
  5. SPASFON [Concomitant]
     Dates: start: 20070301
  6. TARDYFERON B9 [Concomitant]
     Dates: start: 20070301

REACTIONS (28)
  - ABDOMINAL DISCOMFORT [None]
  - ABDOMINAL DISTENSION [None]
  - ANAEMIA [None]
  - ARRHYTHMIA [None]
  - BRADYCARDIA [None]
  - CAESAREAN SECTION [None]
  - CARDIAC FAILURE [None]
  - CARDIOMEGALY [None]
  - COLITIS ULCERATIVE [None]
  - DRUG EXPOSURE DURING PREGNANCY [None]
  - GASTRIC HAEMORRHAGE [None]
  - GENERAL PHYSICAL HEALTH DETERIORATION [None]
  - HYPERKALAEMIA [None]
  - HYPERLACTACIDAEMIA [None]
  - HYPOTONIA [None]
  - NECROTISING COLITIS [None]
  - NEUROLOGICAL EXAMINATION ABNORMAL [None]
  - NEUTROPENIA [None]
  - OLIGURIA [None]
  - OXYGEN SATURATION DECREASED [None]
  - PNEUMATOSIS [None]
  - PREMATURE BABY [None]
  - RENAL FAILURE ACUTE [None]
  - RESPIRATORY DISORDER [None]
  - RESPIRATORY DISTRESS [None]
  - SOMNOLENCE [None]
  - VENTRICULAR HYPOKINESIA [None]
  - WHITE BLOOD CELL COUNT DECREASED [None]
